FAERS Safety Report 20963174 (Version 2)
Quarter: 2022Q3

REPORT INFORMATION
  Report Type: Spontaneous
  Country: JP (occurrence: JP)
  Receive Date: 20220615
  Receipt Date: 20220720
  Transmission Date: 20221027
  Serious: Yes (Hospitalization, Other)
  Sender: FDA-Public Use
  Company Number: JP-Merck Healthcare KGaA-9328310

PATIENT
  Age: 83 Year
  Sex: Female
  Weight: 37 kg

DRUGS (3)
  1. ERBITUX [Suspect]
     Active Substance: CETUXIMAB
     Indication: Gingival cancer
     Dosage: 500 MG, UNKNOWN
     Route: 041
     Dates: start: 20211110, end: 20211117
  2. PACLITAXEL [Suspect]
     Active Substance: PACLITAXEL
     Indication: Gingival cancer
     Dosage: 100 MG, UNKNOWN
     Route: 041
     Dates: start: 20211110, end: 20211117
  3. METHIMAZOLE [Concomitant]
     Active Substance: METHIMAZOLE
     Indication: Product used for unknown indication
     Dosage: UNK
     Route: 048
     Dates: start: 20160425

REACTIONS (3)
  - Pneumonitis [Recovering/Resolving]
  - General physical health deterioration [Recovering/Resolving]
  - Feeding disorder [Recovering/Resolving]

NARRATIVE: CASE EVENT DATE: 20211101
